FAERS Safety Report 9004521 (Version 1)
Quarter: 2013Q1

REPORT INFORMATION
  Report Type: Spontaneous
  Country: US (occurrence: None)
  Receive Date: 20130103
  Receipt Date: 20130103
  Transmission Date: 20140127
  Serious: Yes (Other)
  Sender: FDA-Public Use
  Company Number: None

PATIENT
  Age: 52 Year
  Sex: Female
  Weight: 65.77 kg

DRUGS (1)
  1. CIPRO 500MG [Suspect]
     Indication: UPPER RESPIRATORY TRACT INFECTION
     Dosage: 500 DAY PO
     Route: 048

REACTIONS (3)
  - Pain in extremity [None]
  - Arthralgia [None]
  - Gait disturbance [None]
